FAERS Safety Report 8547125 (Version 6)
Quarter: 2012Q4

REPORT INFORMATION
  Report Type: Report from Study
  Country: FR (occurrence: FR)
  Receive Date: 20120504
  Receipt Date: 20121012
  Transmission Date: 20130627
  Serious: Yes (Other)
  Sender: FDA-Public Use
  Company Number: FR-ROCHE-1063200

PATIENT
  Age: 90 Year
  Sex: Female
  Weight: 48 kg

DRUGS (16)
  1. VISMODEGIB [Suspect]
     Indication: BASAL CELL CARCINOMA
     Dosage: Last dose prior to SAE 22/Apr/2012, temporarily interrupted
     Route: 048
     Dates: start: 20120127, end: 20120423
  2. VITAMIN D [Concomitant]
     Indication: PROPHYLAXIS
     Route: 065
     Dates: start: 20110711
  3. CALCIUM [Concomitant]
     Indication: PROPHYLAXIS
     Route: 065
     Dates: start: 20110711
  4. GAVISCON (FRANCE) [Concomitant]
     Indication: PROPHYLAXIS
     Dosage: 1
     Route: 065
     Dates: start: 20110711
  5. DOLIPRANE [Concomitant]
     Indication: CHEST PAIN
     Route: 065
     Dates: start: 20110711
  6. CONTRAMAL [Concomitant]
     Indication: CHEST PAIN
     Route: 065
     Dates: start: 20110711
  7. MACROGOL [Concomitant]
     Indication: PROPHYLAXIS
     Route: 065
     Dates: start: 20110711
  8. AMLOR [Concomitant]
     Indication: MYOCARDIAL ISCHAEMIA
     Route: 065
     Dates: start: 20110711
  9. PERINDOPRIL [Concomitant]
     Indication: MYOCARDIAL ISCHAEMIA
     Route: 065
     Dates: start: 20110711
  10. STABLON [Concomitant]
     Indication: DEPRESSION
     Route: 065
     Dates: start: 20110711
  11. SERESTA [Concomitant]
     Indication: DEPRESSION
     Route: 065
     Dates: start: 20110711
  12. KARDEGIC [Concomitant]
     Indication: TRANSIENT ISCHAEMIC ATTACK
     Route: 065
     Dates: start: 20110711
  13. KARDEGIC [Concomitant]
     Route: 065
     Dates: start: 20110711
  14. LAMOTRIGINE [Concomitant]
     Indication: COGNITIVE DISORDER
     Route: 065
     Dates: start: 20110711
  15. PLASTENAN [Concomitant]
     Indication: SQUAMOUS CELL CARCINOMA
     Route: 065
     Dates: start: 20120221
  16. EFUDIX [Concomitant]
     Indication: SQUAMOUS CELL CARCINOMA
     Route: 065
     Dates: start: 20120227

REACTIONS (1)
  - Gamma-glutamyltransferase increased [Recovered/Resolved]
